FAERS Safety Report 8240510 (Version 3)
Quarter: 2014Q3

REPORT INFORMATION
  Report Type: Spontaneous
  Country: IN (occurrence: IN)
  Receive Date: 20111111
  Receipt Date: 20140729
  Transmission Date: 20150326
  Serious: Yes (Other)
  Sender: FDA-Public Use
  Company Number: IN-RANBAXY-2011RR-50108

PATIENT
  Age: 51 Year
  Sex: Female

DRUGS (3)
  1. BUSCOPAN [Concomitant]
     Active Substance: BUTYLSCOPOLAMINE BROMIDE
     Indication: PREMEDICATION
     Dosage: UNK
     Route: 065
  2. FULSED [Concomitant]
     Indication: PREMEDICATION
     Dosage: UNK
     Route: 042
  3. IBUPROFEN. [Suspect]
     Active Substance: IBUPROFEN
     Indication: PRODUCT USED FOR UNKNOWN INDICATION
     Dosage: 400 MG, Q4H
     Route: 048

REACTIONS (1)
  - Duodenal obstruction [Recovered/Resolved]
